FAERS Safety Report 7426780-9 (Version None)
Quarter: 2011Q2

REPORT INFORMATION
  Report Type: 
  Country: None (occurrence: None)
  Receive Date: 20110420
  Receipt Date: 20110415
  Transmission Date: 20111010
  Serious: Yes (Other)
  Sender: FDA-Public Use
  Company Number: GB-MERCK-1103GBR00042

PATIENT
  Age: 46 Year
  Sex: Female
  Weight: 97 kg

DRUGS (6)
  1. METFORMIN [Concomitant]
     Indication: BLOOD GLUCOSE ABNORMAL
     Route: 065
  2. WARFARIN [Concomitant]
     Route: 065
  3. ATORVASTATIN [Concomitant]
     Indication: BLOOD CHOLESTEROL ABNORMAL
     Route: 065
  4. GLICLAZIDE [Concomitant]
     Indication: BLOOD GLUCOSE ABNORMAL
     Route: 065
  5. JANUVIA [Suspect]
     Indication: DIABETES MELLITUS
     Route: 048
     Dates: start: 20101101
  6. AMOXICILLIN [Concomitant]
     Route: 065

REACTIONS (1)
  - INTERNATIONAL NORMALISED RATIO FLUCTUATION [None]
